FAERS Safety Report 6045251-8 (Version None)
Quarter: 2009Q1

REPORT INFORMATION
  Report Type: 
  Country: None (occurrence: None)
  Receive Date: 20090121
  Receipt Date: 20090107
  Transmission Date: 20090719
  Serious: Yes (Hospitalization)
  Sender: FDA-Public Use
  Company Number: PHHY2009DE00760

PATIENT
  Age: 56 Year
  Sex: Female

DRUGS (3)
  1. DIOVAN HCT [Suspect]
     Indication: HYPERTENSION
     Dosage: 0.5 DF, QD
     Route: 048
     Dates: start: 20081101
  2. IODINE [Concomitant]
     Route: 048
  3. LEVOTHYROXINE SODIUM [Concomitant]
     Dosage: UNK
     Dates: start: 20081218

REACTIONS (6)
  - ANXIETY [None]
  - DEPRESSION [None]
  - MUSCLE SPASMS [None]
  - PERIPHERAL COLDNESS [None]
  - RESTLESSNESS [None]
  - THYROIDECTOMY [None]
